FAERS Safety Report 17572399 (Version 1)
Quarter: 2020Q1

REPORT INFORMATION
  Report Type: Spontaneous
  Country: US (occurrence: US)
  Receive Date: 20200323
  Receipt Date: 20200323
  Transmission Date: 20200409
  Serious: No
  Sender: FDA-Public Use
  Company Number: None

PATIENT
  Age: 52 Year
  Sex: Male

DRUGS (1)
  1. INSULIN ASPART [Suspect]
     Active Substance: INSULIN ASPART

REACTIONS (6)
  - Fatigue [None]
  - Asthenia [None]
  - Pyrexia [None]
  - Headache [None]
  - Chills [None]
  - Cold sweat [None]

NARRATIVE: CASE EVENT DATE: 20200323
